FAERS Safety Report 5714898-8 (Version None)
Quarter: 2008Q2

REPORT INFORMATION
  Report Type: 
  Country: None (occurrence: None)
  Receive Date: 20080423
  Receipt Date: 20070918
  Transmission Date: 20081010
  Serious: No
  Sender: FDA-Public Use
  Company Number: US-BAYER-US-2007-035169

PATIENT
  Age: 62 Year
  Sex: Female
  Weight: 76 kg

DRUGS (7)
  1. LEUKINE [Suspect]
     Indication: BREAST CANCER
     Route: 058
     Dates: start: 20070801, end: 20070804
  2. DIPHENOXYLATE W/ATROPINE SULFATE [Concomitant]
     Route: 048
  3. ADRIAMYCIN PFS [Concomitant]
     Route: 042
     Dates: start: 20070731
  4. CYTOXAN [Concomitant]
     Route: 042
     Dates: start: 20070731
  5. EMEND [Concomitant]
     Route: 048
     Dates: start: 20070731
  6. DECADRON /CAN/ [Concomitant]
     Dosage: UNIT DOSE: 4 MG
     Route: 048
     Dates: start: 20070801
  7. ZOFRAN [Concomitant]
     Dosage: UNIT DOSE: 8 MG
     Route: 048
     Dates: start: 20070801

REACTIONS (3)
  - DIZZINESS [None]
  - FLUSHING [None]
  - HYPOTENSION [None]
